FAERS Safety Report 8549448-4 (Version None)
Quarter: 2012Q2

REPORT INFORMATION
  Report Type: 
  Country: None (occurrence: None)
  Receive Date: 20120416
  Receipt Date: 20100920
  Transmission Date: 20120825
  Serious: Yes (Other)
  Sender: FDA-Public Use
  Company Number: PHHY2010US62943

PATIENT
  Sex: Female

DRUGS (2)
  1. DIOVAN [Suspect]
     Dosage: 40 MG, UNK
  2. ANTIBIOTICS (NO INGREDIENTS/SUBSTANCES) [Concomitant]

REACTIONS (9)
  - HYPERHIDROSIS [None]
  - VIRAL INFECTION [None]
  - OROPHARYNGEAL PAIN [None]
  - DIZZINESS [None]
  - DYSPHONIA [None]
  - PAIN [None]
  - ASTHENIA [None]
  - DRUG DOSE OMISSION [None]
  - FEELING ABNORMAL [None]
